FAERS Safety Report 7261769-4 (Version None)
Quarter: 2011Q1

REPORT INFORMATION
  Report Type: 
  Country: None (occurrence: None)
  Receive Date: 20110124
  Receipt Date: 20110124
  Transmission Date: 20110831
  Serious: No
  Sender: FDA-Public Use
  Company Number: None

PATIENT
  Age: 33 Year
  Sex: Female
  Weight: 81.6475 kg

DRUGS (2)
  1. ALCOHOL PADS TRIAID [Suspect]
     Indication: THERAPEUTIC SKIN CARE TOPICAL
     Dosage: 2 PADS BI-DAILY OTHER
     Route: 050
     Dates: start: 20110102, end: 20110114
  2. BETASERON [Concomitant]

REACTIONS (8)
  - INSOMNIA [None]
  - FEELING OF BODY TEMPERATURE CHANGE [None]
  - DEHYDRATION [None]
  - DIARRHOEA [None]
  - DECREASED APPETITE [None]
  - MYALGIA [None]
  - PRODUCT QUALITY ISSUE [None]
  - FATIGUE [None]
